FAERS Safety Report 23241470 (Version 1)
Quarter: 2023Q4

REPORT INFORMATION
  Report Type: Spontaneous
  Country: US (occurrence: US)
  Receive Date: 20231129
  Receipt Date: 20231129
  Transmission Date: 20240110
  Serious: Yes (Life-Threatening, Other)
  Sender: FDA-Public Use
  Company Number: US-FreseniusKabi-FK202318907

PATIENT
  Age: 36 Year
  Sex: Female
  Weight: 56.7 kg

DRUGS (18)
  1. FENTANYL [Suspect]
     Active Substance: FENTANYL\FENTANYL CITRATE
     Indication: Product used for unknown indication
  2. TADALAFIL [Suspect]
     Active Substance: TADALAFIL
     Indication: Product used for unknown indication
  3. ORENITRAM [Suspect]
     Active Substance: TREPROSTINIL
     Indication: Pulmonary arterial hypertension
     Dosage: ORENITRAM(TREPROSTINIL DIETHANOLAMINE) EXTENDED RELEASE TABLET, 1 MG?ORENITRAM(TREPROSTINIL DIETHANO
     Route: 048
     Dates: start: 20220728
  4. ORENITRAM [Suspect]
     Active Substance: TREPROSTINIL
     Dosage: ORENITRAM(TREPROSTINIL DIETHANOLAMINE) EXTENDED RELEASE TABLET, 1 MG?ORENITRAM(TREPROSTINIL DIETHANO
     Route: 048
  5. ORENITRAM [Suspect]
     Active Substance: TREPROSTINIL
     Dosage: ORENITRAM(TREPROSTINIL DIETHANOLAMINE) EXTENDED RELEASE TABLET, 1 MG?ORENITRAM(TREPROSTINIL DIETHANO
     Route: 048
  6. ORENITRAM [Suspect]
     Active Substance: TREPROSTINIL
     Dosage: ORENITRAM EXTENDED RELEASE TABLET, UNK MG
     Route: 048
  7. DICLOFENAC POTASSIUM [Concomitant]
     Active Substance: DICLOFENAC POTASSIUM
     Indication: Product used for unknown indication
  8. Pantoprazole sodium (Pantoprazole sodium sesquihydrate) [Concomitant]
     Indication: Product used for unknown indication
  9. OPSUMIT [Concomitant]
     Active Substance: MACITENTAN
     Indication: Product used for unknown indication
  10. Bupropion hcl xl (Bupropion hydrochloride) [Concomitant]
     Indication: Product used for unknown indication
  11. Propranolol HCL (Propranolol hydrochloride) [Concomitant]
     Indication: Product used for unknown indication
  12. Loperamide (Loperamide hydrochloride) [Concomitant]
     Indication: Product used for unknown indication
  13. Naltrexone HCL (Naltrexone hydrochloride) [Concomitant]
     Indication: Product used for unknown indication
  14. KLONOPIN [Concomitant]
     Active Substance: CLONAZEPAM
     Indication: Product used for unknown indication
  15. FUROSEMIDE [Concomitant]
     Active Substance: FUROSEMIDE
     Indication: Product used for unknown indication
  16. REMERON [Concomitant]
     Active Substance: MIRTAZAPINE
     Indication: Product used for unknown indication
  17. Mavyret (Glecaprevir, Pibrentasvir) [Concomitant]
     Indication: Product used for unknown indication
  18. METHOCARBAMOL [Concomitant]
     Active Substance: METHOCARBAMOL

REACTIONS (2)
  - Cardiac arrest [Unknown]
  - Drug interaction [Unknown]
